FAERS Safety Report 15028956 (Version 2)
Quarter: 2018Q3

REPORT INFORMATION
  Report Type: Spontaneous
  Country: GB (occurrence: GB)
  Receive Date: 20180619
  Receipt Date: 20180709
  Transmission Date: 20181010
  Serious: Yes (Death, Hospitalization, Other)
  Sender: FDA-Public Use
  Company Number: GB-MYLANLABS-2018M1045214

PATIENT
  Sex: Female
  Weight: 57 kg

DRUGS (5)
  1. CLOZARIL [Suspect]
     Active Substance: CLOZAPINE
     Indication: SCHIZOPHRENIA
     Dosage: 50 MG, BID
     Route: 048
     Dates: start: 19990309, end: 20180613
  2. MACROGOL [Concomitant]
     Active Substance: POLYETHYLENE GLYCOLS
     Indication: GASTROINTESTINAL MOTILITY DISORDER
     Dosage: 2 DF, QD
     Route: 048
  3. RAMIPRIL. [Concomitant]
     Active Substance: RAMIPRIL
     Indication: BLOOD PRESSURE ABNORMAL
     Dosage: 2.5 MG, PM
     Route: 048
  4. FERROUS SULFATE. [Concomitant]
     Active Substance: FERROUS SULFATE
     Indication: IRON DEFICIENCY ANAEMIA
     Dosage: 200 MG, QD
     Route: 048
  5. RANITIDINE. [Concomitant]
     Active Substance: RANITIDINE
     Indication: GASTRIC DISORDER
     Dosage: 150 MG, QD
     Route: 048

REACTIONS (8)
  - Abdominal mass [Fatal]
  - Basal cell carcinoma [Unknown]
  - Type 2 diabetes mellitus [Unknown]
  - Gastrointestinal carcinoma [Fatal]
  - Intestinal ischaemia [Fatal]
  - Loss of consciousness [Unknown]
  - Iron deficiency anaemia [Unknown]
  - Constipation [Unknown]

NARRATIVE: CASE EVENT DATE: 2006
